FAERS Safety Report 17354790 (Version 1)
Quarter: 2020Q1

REPORT INFORMATION
  Report Type: Spontaneous
  Country: JP (occurrence: JP)
  Receive Date: 20200131
  Receipt Date: 20200131
  Transmission Date: 20200409
  Serious: Yes (Disabling)
  Sender: FDA-Public Use
  Company Number: NVSJ2020JP000790

PATIENT

DRUGS (2)
  1. DIOVAN [Suspect]
     Active Substance: VALSARTAN
     Indication: PRODUCT USED FOR UNKNOWN INDICATION
     Dosage: 40 MG
     Route: 048
  2. DIOVAN [Suspect]
     Active Substance: VALSARTAN
     Dosage: 20 MG, UNK
     Route: 048

REACTIONS (3)
  - Monoplegia [Unknown]
  - Flatulence [Recovering/Resolving]
  - Spondylolisthesis [Unknown]
